FAERS Safety Report 7790162-0 (Version None)
Quarter: 2011Q3

REPORT INFORMATION
  Report Type: 
  Country: None (occurrence: None)
  Receive Date: 20110930
  Receipt Date: 20101102
  Transmission Date: 20111222
  Serious: No
  Sender: FDA-Public Use
  Company Number: US-ASTRAZENECA-2010SE18665

PATIENT
  Age: 72 Year
  Sex: Female
  Weight: 85.3 kg

DRUGS (8)
  1. CALCIUM CARBONATE [Concomitant]
  2. VITAMIN B COMPLEX CAP [Concomitant]
  3. CITRICAL WITH MAGNESIUM [Concomitant]
  4. ACETAMINOPHEN [Concomitant]
  5. ARIMIDEX [Suspect]
     Indication: BREAST CANCER
     Route: 048
     Dates: start: 20091218, end: 20100301
  6. TYLENOL-500 [Concomitant]
  7. VITAMIN D [Concomitant]
  8. CLARITIN-D 24 HOUR [Concomitant]
     Indication: MULTIPLE ALLERGIES

REACTIONS (4)
  - DIARRHOEA [None]
  - POLLAKIURIA [None]
  - LACTOSE INTOLERANCE [None]
  - DYSPEPSIA [None]
